FAERS Safety Report 10152929 (Version 1)
Quarter: 2014Q2

REPORT INFORMATION
  Report Type: Report from Study
  Country: ES (occurrence: ES)
  Receive Date: 20140505
  Receipt Date: 20140505
  Transmission Date: 20141212
  Serious: Yes (Hospitalization)
  Sender: FDA-Public Use
  Company Number: ES-JNJFOC-20140419206

PATIENT
  Age: 70 Year
  Sex: Male
  Weight: 124 kg

DRUGS (9)
  1. USTEKINUMAB [Suspect]
     Indication: PSORIASIS
     Route: 058
     Dates: start: 201311
  2. EUTIROX [Concomitant]
     Route: 065
  3. ACENOCOUMAROL [Concomitant]
     Route: 065
  4. ATORVASTATIN [Concomitant]
     Route: 065
  5. ESCITALOPRAM [Concomitant]
     Route: 065
  6. ALDACTONE [Concomitant]
     Route: 065
  7. LISINOPRIL [Concomitant]
     Route: 065
  8. CLOPIDOGREL [Concomitant]
     Route: 065
  9. ATROVENT [Concomitant]
     Route: 065

REACTIONS (2)
  - Oedema [Recovered/Resolved]
  - Pain in extremity [Unknown]
